FAERS Safety Report 11750384 (Version 5)
Quarter: 2016Q2

REPORT INFORMATION
  Report Type: Report from Study
  Country: BR (occurrence: BR)
  Receive Date: 20151118
  Receipt Date: 20160405
  Transmission Date: 20160815
  Serious: Yes (Hospitalization, Other)
  Sender: FDA-Public Use
  Company Number: PHHY2015BR053835

PATIENT
  Age: 51 Year
  Sex: Female
  Weight: 60 kg

DRUGS (5)
  1. CLOMIPRAMINE HYDROCHLORIDE. [Concomitant]
     Active Substance: CLOMIPRAMINE HYDROCHLORIDE
     Indication: PRODUCT USED FOR UNKNOWN INDICATION
     Dosage: 1 DF, AT NIGHT
     Route: 048
  2. GILENYA [Suspect]
     Active Substance: FINGOLIMOD HYDROCHLORIDE
     Indication: MULTIPLE SCLEROSIS
     Dosage: 0.5 MG, QD
     Route: 048
     Dates: start: 201510
  3. ZINA [Concomitant]
     Indication: PRODUCT USED FOR UNKNOWN INDICATION
     Dosage: 5 MG, QD
     Route: 048
     Dates: start: 20150425
  4. HEDERA HELIX [Concomitant]
     Active Substance: HEDERA HELIX FLOWERING TWIG
     Indication: PRODUCT USED FOR UNKNOWN INDICATION
     Dosage: 100 MG, Q12H
     Route: 048
     Dates: start: 20150425, end: 20150430
  5. NATIFA PRO [Concomitant]
     Indication: MENOPAUSE
     Dosage: 1 DF, QD (MORE THAN 1 YEAR AGO)
     Route: 048

REACTIONS (33)
  - Chills [Recovered/Resolved]
  - Rhinitis [Recovered/Resolved]
  - Blood cholesterol increased [Unknown]
  - Diarrhoea [Recovered/Resolved]
  - Dizziness [Recovered/Resolved]
  - Burning sensation [Recovered/Resolved]
  - Pyrexia [Recovered/Resolved]
  - Pyrexia [Recovered/Resolved]
  - Sinusitis [Recovered/Resolved]
  - Bronchitis [Recovered/Resolved]
  - Alanine aminotransferase increased [Recovered/Resolved]
  - Eye disorder [Recovering/Resolving]
  - Malaise [Unknown]
  - Vomiting [Recovered/Resolved]
  - Hypersensitivity [Recovered/Resolved]
  - Breast mass [Recovered/Resolved]
  - Sneezing [Recovered/Resolved]
  - Aphasia [Unknown]
  - Asthenia [Unknown]
  - Pneumonia [Recovered/Resolved]
  - Cough [Recovering/Resolving]
  - Dizziness [Recovering/Resolving]
  - Blood glucose increased [Unknown]
  - Dyspnoea [Recovered/Resolved]
  - Bronchitis [Unknown]
  - Pharyngitis [Recovered/Resolved]
  - Tension [Recovering/Resolving]
  - Fear [Recovered/Resolved]
  - Aspartate aminotransferase increased [Recovered/Resolved]
  - Dyspnoea [Recovered/Resolved]
  - Stress [Recovering/Resolving]
  - Gastric disorder [Recovering/Resolving]
  - Headache [Recovered/Resolved]

NARRATIVE: CASE EVENT DATE: 20151104
